FAERS Safety Report 4709066-2 (Version None)
Quarter: 2005Q3

REPORT INFORMATION
  Report Type: 
  Country: None (occurrence: None)
  Receive Date: 20050707
  Receipt Date: 20050627
  Transmission Date: 20060218
  Serious: No
  Sender: FDA-Public Use
  Company Number: 232254K05USA

PATIENT
  Age: 49 Year
  Sex: Female

DRUGS (7)
  1. REBIF [Suspect]
     Indication: MULTIPLE SCLEROSIS
     Dosage: 44 MCG, 3 IN 1 WEEKS, SUBCUTANEOUS
     Route: 058
     Dates: start: 20030512
  2. NEURONTIN [Concomitant]
  3. GABAPENTIN [Concomitant]
  4. MENEST [Concomitant]
  5. PROMETRIUM [Concomitant]
  6. MULTIVITAMIN [Concomitant]
  7. ASPIRIN [Concomitant]

REACTIONS (7)
  - ARTHRALGIA [None]
  - BLOOD FOLLICLE STIMULATING HORMONE ABNORMAL [None]
  - INJECTION SITE PAIN [None]
  - MENSTRUAL DISORDER [None]
  - MUSCLE SPASMS [None]
  - PITUITARY TUMOUR [None]
  - SKIN DISORDER [None]
